FAERS Safety Report 25659164 (Version 1)
Quarter: 2025Q3

REPORT INFORMATION
  Report Type: Spontaneous
  Country: IR (occurrence: IR)
  Receive Date: 20250808
  Receipt Date: 20250808
  Transmission Date: 20251021
  Serious: Yes (Death, Hospitalization, Other)
  Sender: Steriscience PTE
  Company Number: IR-STERISCIENCE B.V.-2025-ST-001413

PATIENT
  Age: 62 Year
  Sex: Female

DRUGS (4)
  1. SODIUM BICARBONATE [Suspect]
     Active Substance: SODIUM BICARBONATE
     Indication: Tumour lysis syndrome
     Route: 042
  2. ALLOPURINOL [Suspect]
     Active Substance: ALLOPURINOL
     Indication: Tumour lysis syndrome
     Route: 042
  3. INSULIN NOS [Suspect]
     Active Substance: INSULIN NOS
     Indication: Tumour lysis syndrome
     Route: 042
  4. DEXTROSE [Suspect]
     Active Substance: DEXTROSE MONOHYDRATE
     Indication: Tumour lysis syndrome
     Route: 042

REACTIONS (2)
  - Therapy non-responder [Fatal]
  - Off label use [Unknown]
